FAERS Safety Report 8008258-7 (Version None)
Quarter: 2011Q4

REPORT INFORMATION
  Report Type: 
  Country: None (occurrence: None)
  Receive Date: 20111227
  Receipt Date: 20111222
  Transmission Date: 20120403
  Serious: Yes (Other)
  Sender: FDA-Public Use
  Company Number: CA-ROCHE-1024394

PATIENT
  Sex: Male
  Weight: 74.91 kg

DRUGS (10)
  1. PLAQUENIL [Concomitant]
  2. FOLIC ACID [Concomitant]
  3. METHYLPREDNISOLONE [Concomitant]
     Indication: PREMEDICATION
     Route: 042
     Dates: start: 20110602, end: 20110602
  4. SULFASALAZINE [Concomitant]
  5. CALCIUM ACETATE [Concomitant]
  6. ACETAMINOPHEN [Concomitant]
     Indication: PREMEDICATION
     Route: 048
     Dates: start: 20110602, end: 20110602
  7. MABTHERA [Suspect]
     Indication: RHEUMATOID ARTHRITIS
     Route: 042
     Dates: start: 20110519
  8. DIPHENHYDRAMINE HCL [Concomitant]
     Indication: PREMEDICATION
     Route: 048
     Dates: start: 20110602, end: 20110602
  9. CELEBREX [Concomitant]
  10. METHOTREXATE [Concomitant]

REACTIONS (1)
  - HYPOAESTHESIA [None]
